FAERS Safety Report 15602108 (Version 1)
Quarter: 2018Q4

REPORT INFORMATION
  Report Type: Spontaneous
  Country: US (occurrence: US)
  Receive Date: 20181109
  Receipt Date: 20181109
  Transmission Date: 20190205
  Serious: No
  Sender: FDA-Public Use
  Company Number: US-TEVA-2018-US-974856

PATIENT
  Age: 71 Year
  Sex: Female

DRUGS (2)
  1. CLONAZTAB (UNKNOWN) [Suspect]
     Active Substance: CLONAZEPAM
     Indication: ANXIETY
     Route: 065
  2. CLONAZTAB (UNKNOWN) [Suspect]
     Active Substance: CLONAZEPAM
     Indication: SLEEP DISORDER

REACTIONS (1)
  - Drug ineffective [Unknown]
